FAERS Safety Report 6902795-1 (Version None)
Quarter: 2010Q3

REPORT INFORMATION
  Report Type: 
  Country: None (occurrence: None)
  Receive Date: 20100803
  Receipt Date: 20080703
  Transmission Date: 20110219
  Serious: No
  Sender: FDA-Public Use
  Company Number: US-PFIZER INC-2008039371

PATIENT
  Sex: Female
  Weight: 61.2 kg

DRUGS (15)
  1. LYRICA [Suspect]
     Indication: FIBROMYALGIA
     Dates: start: 20080401
  2. CHANTIX [Suspect]
     Indication: SMOKING CESSATION THERAPY
     Dates: start: 20080521
  3. ALBUTEROL [Concomitant]
  4. ADVAIR DISKUS 100/50 [Concomitant]
     Route: 055
  5. NEURONTIN [Concomitant]
  6. CYMBALTA [Concomitant]
  7. AMBIEN [Concomitant]
  8. CLONAZEPAM [Concomitant]
  9. IRON [Concomitant]
  10. ESTROGENS SOL/INJ [Concomitant]
  11. PROZAC [Concomitant]
  12. AMITRIPTYLINE HYDROCHLORIDE [Concomitant]
  13. IBUPROFEN [Concomitant]
  14. PROVENTIL GENTLEHALER [Concomitant]
  15. ALL OTHER THERAPEUTIC PRODUCTS [Concomitant]

REACTIONS (9)
  - FIBROMYALGIA [None]
  - FLATULENCE [None]
  - HORMONE LEVEL ABNORMAL [None]
  - INCREASED APPETITE [None]
  - MOOD SWINGS [None]
  - MYALGIA [None]
  - NAUSEA [None]
  - NIGHT SWEATS [None]
  - TREMOR [None]
